FAERS Safety Report 5554218-5 (Version None)
Quarter: 2007Q4

REPORT INFORMATION
  Report Type: 
  Country: None (occurrence: None)
  Receive Date: 20071213
  Receipt Date: 20071204
  Transmission Date: 20080405
  Serious: Yes (Death, Hospitalization, Other)
  Sender: FDA-Public Use
  Company Number: DE-JNJFOC-20071109028

PATIENT
  Age: 75 Year
  Sex: Male

DRUGS (13)
  1. REMICADE [Suspect]
     Indication: RHEUMATOID ARTHRITIS
     Route: 042
  2. RITUXIMAB [Suspect]
  3. RITUXIMAB [Suspect]
     Indication: RHEUMATOID ARTHRITIS
  4. ADALIMUMAB [Concomitant]
  5. LISINOPRIL [Concomitant]
     Dosage: 5
     Route: 048
  6. NEXIUM [Concomitant]
     Dosage: 20
     Route: 048
  7. IBUPROFEN [Concomitant]
     Dosage: 600
     Route: 048
  8. DOCITON [Concomitant]
     Dosage: 25
     Route: 048
  9. AMARYL [Concomitant]
     Route: 048
  10. JURNISTA [Concomitant]
  11. PREDNISOLONE [Concomitant]
     Dosage: 20(MORNING)-0-10(EVENING)
     Route: 048
  12. SANDOCAL D FORTE [Concomitant]
  13. MOVICOL [Concomitant]

REACTIONS (15)
  - ATRIAL FIBRILLATION [None]
  - DEATH [None]
  - DYSPHAGIA [None]
  - DYSPHONIA [None]
  - HORNER'S SYNDROME [None]
  - HYPERTENSION [None]
  - PERICARDIAL EFFUSION [None]
  - PERTUSSIS [None]
  - PLEURAL EFFUSION [None]
  - PNEUMONIA [None]
  - POLYNEUROPATHY [None]
  - RECTAL ULCER [None]
  - RESPIRATORY FAILURE [None]
  - RHEUMATOID ARTHRITIS [None]
  - SEPSIS [None]
